FAERS Safety Report 14549468 (Version 1)
Quarter: 2018Q1

REPORT INFORMATION
  Report Type: Spontaneous
  Country: FI (occurrence: FI)
  Receive Date: 20180219
  Receipt Date: 20180219
  Transmission Date: 20180509
  Serious: Yes (Life-Threatening)
  Sender: FDA-Public Use
  Company Number: FI-CONCORDIA PHARMACEUTICALS INC.-E2B_00009948

PATIENT
  Age: 83 Year
  Sex: Male

DRUGS (10)
  1. ORLOC [Concomitant]
     Active Substance: BISOPROLOL FUMARATE
     Dosage: 7.5,MG,DAILY
     Route: 048
     Dates: start: 20121108
  2. CRESTOR [Concomitant]
     Active Substance: ROSUVASTATIN CALCIUM
     Dosage: 5,MG,DAILY
     Route: 048
     Dates: start: 2012
  3. PEGORION [Concomitant]
     Active Substance: POLYETHYLENE GLYCOL 4000
     Indication: CONSTIPATION
     Dosage: 12,G,DAILY
     Route: 048
     Dates: start: 20180120
  4. TAMSULOSIINIHYDROKLORIDI SANDOZ [Concomitant]
     Dosage: 0.4,MG,DAILY
     Route: 048
     Dates: start: 20180119
  5. BRILIQUE [Suspect]
     Active Substance: TICAGRELOR
     Indication: ACUTE MYOCARDIAL INFARCTION
     Dosage: 180,MG,X1
     Route: 048
     Dates: start: 20180122
  6. TRAJENTA [Concomitant]
     Active Substance: LINAGLIPTIN
     Dosage: 5,MG,DAILY
     Route: 048
     Dates: start: 20150319
  7. PRIMASPAN [Concomitant]
     Active Substance: ASPIRIN
     Dosage: 100,MG,DAILY
     Route: 048
     Dates: start: 20180119
  8. DIGOXIN. [Suspect]
     Active Substance: DIGOXIN
     Indication: ATRIAL FIBRILLATION
     Dosage: 0.5,MG,X1
     Route: 042
     Dates: start: 20180122, end: 20180122
  9. FURESIS [Concomitant]
     Active Substance: FUROSEMIDE
     Indication: CARDIAC FAILURE
     Dosage: 40,MG,DAILY
     Route: 048
     Dates: start: 20180120
  10. MAREVAN FORTE [Concomitant]
     Active Substance: WARFARIN SODIUM
     Indication: ATRIAL FIBRILLATION
     Route: 048
     Dates: start: 20121108

REACTIONS (2)
  - Loss of consciousness [Recovered/Resolved]
  - Cardiac arrest [Recovered/Resolved]

NARRATIVE: CASE EVENT DATE: 20180122
